FAERS Safety Report 8391283-4 (Version None)
Quarter: 2012Q2

REPORT INFORMATION
  Report Type: 
  Country: None (occurrence: None)
  Receive Date: 20120529
  Receipt Date: 20111118
  Transmission Date: 20120825
  Serious: No
  Sender: FDA-Public Use
  Company Number: US-ABBOTT-11P-163-0876702-00

PATIENT
  Sex: Female
  Weight: 108.96 kg

DRUGS (8)
  1. DEPAKOTE [Concomitant]
     Indication: BIPOLAR DISORDER
  2. KLONOPIN [Concomitant]
     Indication: ANXIETY
  3. ZEMPLAR [Suspect]
     Indication: HYPERPARATHYROIDISM
  4. LOSARTAN POTASSIUM [Concomitant]
     Indication: HYPERTENSION
  5. SYNTHROID [Concomitant]
     Indication: HYPOTHYROIDISM
  6. LAMICTAL [Concomitant]
     Indication: BIPOLAR DISORDER
  7. VERAPAMIL HCL [Concomitant]
     Indication: HYPERTENSION
  8. ZEMPLAR [Suspect]
     Indication: RENAL FAILURE
     Dates: start: 20111114

REACTIONS (3)
  - HAEMORRHAGE [None]
  - NERVOUSNESS [None]
  - BLEEDING TIME PROLONGED [None]
